FAERS Safety Report 4943026-1 (Version None)
Quarter: 2006Q1

REPORT INFORMATION
  Report Type: 
  Country: None (occurrence: None)
  Receive Date: 20060314
  Receipt Date: 20040407
  Transmission Date: 20060701
  Serious: Yes (Death)
  Sender: FDA-Public Use
  Company Number: FR-SANOFI-SYNTHELABO-D01200401

PATIENT
  Age: 83 Year
  Sex: Female
  Weight: 59 kg

DRUGS (10)
  1. FONDAPARINUX [Suspect]
     Indication: ACUTE CORONARY SYNDROME
     Dosage: 2.5MG PER DAY
     Route: 058
     Dates: start: 20040402, end: 20040405
  2. AGGRASTAT [Concomitant]
  3. CLOPIDOGREL [Concomitant]
     Route: 048
  4. ISOSORBIDE DINITRATE [Concomitant]
  5. KALEORID [Concomitant]
  6. KARDEGIC [Concomitant]
     Route: 048
  7. MOLSIDOMINE [Concomitant]
     Dosage: 6MG PER DAY
  8. SPIRONOLACTONE [Concomitant]
  9. TIROFIBAN HYDROCHLORIDE [Concomitant]
  10. ZOCOR [Concomitant]

REACTIONS (1)
  - CATHETER RELATED COMPLICATION [None]
